FAERS Safety Report 12311994 (Version 1)
Quarter: 2016Q2

REPORT INFORMATION
  Report Type: Spontaneous
  Country: ES (occurrence: ES)
  Receive Date: 20160427
  Receipt Date: 20160427
  Transmission Date: 20160815
  Serious: Yes (Hospitalization, Other)
  Sender: FDA-Public Use
  Company Number: ES-ASTRAZENECA-2016SE43137

PATIENT
  Age: 85 Year
  Sex: Male

DRUGS (1)
  1. IRESSA [Suspect]
     Active Substance: GEFITINIB
     Indication: NON-SMALL CELL LUNG CANCER STAGE IV
     Route: 048
     Dates: start: 20160317, end: 20160329

REACTIONS (5)
  - Diarrhoea [Recovering/Resolving]
  - Rectal haemorrhage [Recovering/Resolving]
  - Bone pain [Recovering/Resolving]
  - Condition aggravated [Recovering/Resolving]
  - Asthenia [Unknown]

NARRATIVE: CASE EVENT DATE: 20160325
